FAERS Safety Report 5806009-5 (Version None)
Quarter: 2008Q3

REPORT INFORMATION
  Report Type: 
  Country: None (occurrence: None)
  Receive Date: 20080710
  Receipt Date: 20080704
  Transmission Date: 20090109
  Serious: Yes (Other)
  Sender: FDA-Public Use
  Company Number: B0528253A

PATIENT
  Age: 50 Year
  Sex: Female
  Weight: 70 kg

DRUGS (6)
  1. LAPATINIB [Suspect]
     Indication: BREAST CANCER
     Dosage: 1500MG PER DAY
     Route: 048
     Dates: start: 20080624
  2. PACLITAXEL [Suspect]
     Indication: BREAST CANCER
     Dosage: 80MGM2 PER DAY
     Route: 042
     Dates: start: 20080624
  3. ACETAMINOPHEN [Concomitant]
     Indication: PAIN
     Dosage: 1000MG FOUR TIMES PER DAY
     Route: 048
     Dates: start: 20080325
  4. HYDROCHLOROTHIAZIDE [Concomitant]
     Indication: HYPERTENSION
     Dosage: 25MG PER DAY
     Route: 048
  5. METOPROLOL SUCCINATE [Concomitant]
     Indication: HYPERTENSION
     Dosage: 50MG PER DAY
     Route: 048
     Dates: start: 20071105
  6. ZANTAC [Concomitant]
     Dosage: 150MG PER DAY
     Route: 048
     Dates: start: 20080701

REACTIONS (7)
  - ALANINE AMINOTRANSFERASE INCREASED [None]
  - ASPARTATE AMINOTRANSFERASE INCREASED [None]
  - BLOOD BILIRUBIN INCREASED [None]
  - CONDITION AGGRAVATED [None]
  - FREQUENT BOWEL MOVEMENTS [None]
  - GAMMA-GLUTAMYLTRANSFERASE INCREASED [None]
  - RASH [None]
